FAERS Safety Report 5144602-6 (Version None)
Quarter: 2006Q4

REPORT INFORMATION
  Report Type: 
  Country: None (occurrence: None)
  Receive Date: 20061031
  Receipt Date: 20061025
  Transmission Date: 20070319
  Serious: Yes (Hospitalization, Other)
  Sender: FDA-Public Use
  Company Number: 2006JP003031

PATIENT
  Age: 79 Year
  Sex: Female

DRUGS (11)
  1. VESICARE [Suspect]
     Indication: HYPERTONIC BLADDER
     Dosage: 5 MG, UID/QD, ORAL
     Route: 048
     Dates: start: 20060801, end: 20060830
  2. OPALMON                      (LIMAPROST) [Suspect]
     Indication: ARTERIOSCLEROSIS OBLITERANS
     Dosage: 2.5 UG, BID, ORAL
     Route: 048
     Dates: start: 20060819, end: 20060903
  3. LIPITOR [Concomitant]
  4. AMLODIPINE BESYLATE [Concomitant]
  5. PLATBIT             (ALFACALCIDOL) [Concomitant]
  6. TOWAMIN                  (ATENOLOL) [Concomitant]
  7. ALLOPURINOL [Concomitant]
  8. CILOSTAZOL [Concomitant]
  9. LOXONIN               (LOXOPROFEN SODIUM) [Concomitant]
  10. NEUROTROPIN                   (ORGAN LYSATE, STANDARDIZED) [Concomitant]
  11. PROMAC                      (POLAPREZINC) [Concomitant]

REACTIONS (4)
  - ANOREXIA [None]
  - DRY MOUTH [None]
  - RENAL IMPAIRMENT [None]
  - STOMATITIS [None]
